FAERS Safety Report 9407867 (Version 1)
Quarter: 2013Q3

REPORT INFORMATION
  Report Type: Spontaneous
  Country: US (occurrence: US)
  Receive Date: 20130718
  Receipt Date: 20130718
  Transmission Date: 20140515
  Serious: Yes (Hospitalization)
  Sender: FDA-Public Use
  Company Number: US-ELI_LILLY_AND_COMPANY-US201307001499

PATIENT
  Age: 52 Year
  Sex: Male
  Weight: 81.63 kg

DRUGS (2)
  1. EFFIENT [Suspect]
     Dosage: UNK
     Dates: start: 20130625
  2. LIPITOR [Concomitant]

REACTIONS (2)
  - Angina unstable [Recovered/Resolved]
  - Coronary artery restenosis [Recovered/Resolved]
